FAERS Safety Report 8089804-4 (Version None)
Quarter: 2012Q1

REPORT INFORMATION
  Report Type: 
  Country: None (occurrence: None)
  Receive Date: 20120128
  Receipt Date: 20110617
  Transmission Date: 20120608
  Serious: No
  Sender: FDA-Public Use
  Company Number: US-ABBOTT-11P-163-0733710-00

PATIENT

DRUGS (5)
  1. BENTYL [Concomitant]
     Indication: CROHN'S DISEASE
  2. LIALDA [Concomitant]
     Indication: CROHN'S DISEASE
  3. HUMIRA [Suspect]
     Indication: CROHN'S DISEASE
     Dates: start: 20100201
  4. HYOSCYAMINE [Concomitant]
     Indication: CROHN'S DISEASE
  5. ALIGN [Concomitant]
     Indication: PROBIOTIC THERAPY

REACTIONS (2)
  - CROHN'S DISEASE [None]
  - MALAISE [None]
